FAERS Safety Report 8392430-0 (Version None)
Quarter: 2012Q2

REPORT INFORMATION
  Report Type: 
  Country: None (occurrence: None)
  Receive Date: 20120529
  Receipt Date: 20120524
  Transmission Date: 20120825
  Serious: No
  Sender: FDA-Public Use
  Company Number: US-PFIZER INC-2012126134

PATIENT
  Sex: Female
  Weight: 51.247 kg

DRUGS (3)
  1. EFFEXOR XR [Suspect]
     Dosage: 70 MG, DAILY
     Dates: end: 20120501
  2. EFFEXOR XR [Suspect]
     Indication: DEPRESSION
     Dosage: 70 MG, DAILY IN EVENING
  3. EFFEXOR XR [Suspect]
     Indication: ANXIETY
     Dosage: 35 MG, DAILY IN EVENING

REACTIONS (6)
  - DEPRESSION [None]
  - STRESS [None]
  - ANXIETY [None]
  - AGITATION [None]
  - INSOMNIA [None]
  - RESTLESSNESS [None]
